FAERS Safety Report 10477406 (Version 1)
Quarter: 2014Q3

REPORT INFORMATION
  Report Type: Spontaneous
  Country: GB (occurrence: None)
  Receive Date: 20140923
  Receipt Date: 20140923
  Transmission Date: 20150326
  Serious: Yes (Hospitalization)
  Sender: FDA-Public Use
  Company Number: IMP_07935_2014

PATIENT
  Age: 59 Year
  Sex: Male

DRUGS (2)
  1. OMEPRAZOLE. [Suspect]
     Active Substance: OMEPRAZOLE
     Indication: GASTROOESOPHAGEAL REFLUX DISEASE
     Dosage: (DF)
  2. BENDROFLUMETHIAZIDE [Concomitant]
     Active Substance: BENDROFLUMETHIAZIDE

REACTIONS (8)
  - Vomiting [None]
  - Decreased appetite [None]
  - Nausea [None]
  - Diarrhoea [None]
  - Hypomagnesaemia [None]
  - Fatigue [None]
  - Paraesthesia [None]
  - Hypocalcaemia [None]

NARRATIVE: CASE EVENT DATE: 200903
